FAERS Safety Report 6883482-5 (Version None)
Quarter: 2010Q3

REPORT INFORMATION
  Report Type: 
  Country: None (occurrence: None)
  Receive Date: 20100727
  Receipt Date: 20100712
  Transmission Date: 20110219
  Serious: Yes (Hospitalization)
  Sender: FDA-Public Use
  Company Number: 2008BI032396

PATIENT
  Age: 47 Year
  Sex: Male

DRUGS (6)
  1. ZEVALIN [Suspect]
     Indication: B-CELL LYMPHOMA
     Dosage: 1230 MBQ; 1X; IV
     Route: 042
     Dates: start: 20071206, end: 20071206
  2. RITUXIMAB [Concomitant]
  3. CARMUSTINE [Concomitant]
  4. ETOPOSIDE [Concomitant]
  5. CYTARABINE [Concomitant]
  6. MELPHALAN [Concomitant]

REACTIONS (5)
  - ASPIRATION [None]
  - ENTEROCOLITIS [None]
  - LUNG DISORDER [None]
  - NEUTROPENIA [None]
  - RESPIRATORY FAILURE [None]
